FAERS Safety Report 6230834-2 (Version None)
Quarter: 2009Q2

REPORT INFORMATION
  Report Type: 
  Country: None (occurrence: None)
  Receive Date: 20090616
  Receipt Date: 20090604
  Transmission Date: 20091009
  Serious: Yes (Other)
  Sender: FDA-Public Use
  Company Number: US-PFIZER INC-2009225422

PATIENT
  Sex: Female
  Weight: 99.79 kg

DRUGS (1)
  1. CHANTIX [Suspect]
     Indication: SMOKING CESSATION THERAPY
     Dosage: UNK
     Dates: start: 20090201, end: 20090301

REACTIONS (8)
  - ABNORMAL DREAMS [None]
  - ANXIETY [None]
  - BREAST CANCER [None]
  - BREAST CANCER FEMALE [None]
  - DYSPHAGIA [None]
  - DYSPNOEA [None]
  - PANIC ATTACK [None]
  - PARANOIA [None]
